FAERS Safety Report 11415720 (Version 1)
Quarter: 2015Q3

REPORT INFORMATION
  Report Type: Spontaneous
  Country: US (occurrence: None)
  Receive Date: 20150824
  Receipt Date: 20150824
  Transmission Date: 20151125
  Serious: No
  Sender: FDA-Public Use
  Company Number: None

PATIENT
  Age: 6 Month
  Sex: Female
  Weight: 53.52 kg

DRUGS (7)
  1. VITAMIN B12 [Concomitant]
     Active Substance: CYANOCOBALAMIN
  2. FISH OIL [Concomitant]
     Active Substance: FISH OIL
  3. PRESERVISION [Concomitant]
     Active Substance: MINERALS\VITAMINS
  4. TRAZODONE [Suspect]
     Active Substance: TRAZODONE HYDROCHLORIDE
     Indication: INSOMNIA
     Dosage: TAKEN BY MOUTH
     Route: 048
  5. ALIGN [Concomitant]
     Active Substance: BIFIDOBACTERIUM LONGUM SUBSP. INFANTIS
  6. CALTRATE [Concomitant]
     Active Substance: CALCIUM CARBONATE
  7. LETROZOLE  2.5 MG [Concomitant]
     Active Substance: LETROZOLE

REACTIONS (3)
  - Chills [None]
  - Vision blurred [None]
  - Weight decreased [None]

NARRATIVE: CASE EVENT DATE: 20150715
